FAERS Safety Report 5207636-9 (Version None)
Quarter: 2007Q1

REPORT INFORMATION
  Report Type: 
  Country: None (occurrence: None)
  Receive Date: 20070112
  Receipt Date: 20070102
  Transmission Date: 20070707
  Serious: Yes (Other)
  Sender: FDA-Public Use
  Company Number: US-PFIZER INC-2006131273

PATIENT
  Sex: Female

DRUGS (13)
  1. GEODON [Suspect]
     Indication: DELUSIONAL DISORDER, SOMATIC TYPE
     Dates: start: 20060101, end: 20060101
  2. GEODON [Suspect]
     Indication: INTERMITTENT EXPLOSIVE DISORDER
  3. GEODON [Suspect]
     Indication: WEIGHT DECREASED
  4. NAVANE [Suspect]
     Route: 048
  5. INDERAL [Suspect]
     Indication: TREMOR
     Route: 048
  6. INDERAL [Suspect]
     Indication: ANXIETY
  7. COLACE [Concomitant]
     Route: 048
  8. FIBERLAX [Concomitant]
     Route: 048
  9. PROTONIX [Concomitant]
     Route: 048
  10. ATIVAN [Concomitant]
     Route: 048
  11. LUNESTA [Concomitant]
     Route: 048
  12. COGENTIN [Concomitant]
     Route: 048
  13. ESKALITH - SLOW RELEASE [Concomitant]
     Route: 048

REACTIONS (14)
  - AGITATION [None]
  - ANXIETY [None]
  - BLOOD IRON DECREASED [None]
  - BLOOD PRESSURE ABNORMAL [None]
  - DRUG LEVEL ABOVE THERAPEUTIC [None]
  - HALLUCINATION [None]
  - HEPATIC ENZYME INCREASED [None]
  - IRON BINDING CAPACITY TOTAL INCREASED [None]
  - PARANOIA [None]
  - PROTEIN TOTAL DECREASED [None]
  - PSYCHOTIC DISORDER [None]
  - PULSE ABNORMAL [None]
  - SKIN LESION [None]
  - TREMOR [None]
